FAERS Safety Report 6508066-X (Version None)
Quarter: 2009Q4

REPORT INFORMATION
  Report Type: 
  Country: None (occurrence: None)
  Receive Date: 20091210
  Receipt Date: 20090709
  Transmission Date: 20100525
  Serious: Yes (Disabling)
  Sender: FDA-Public Use
  Company Number: CIP09001304

PATIENT
  Age: 73 Year
  Sex: Female

DRUGS (4)
  1. ACTONEL [Suspect]
     Indication: OSTEITIS DEFORMANS
     Dosage: 35 MG ONCE WEEKLY, ORAL
     Route: 048
  2. SYNTHROID [Concomitant]
  3. CALCIUM (CALCIUM) [Concomitant]
  4. IMURAN [Concomitant]

REACTIONS (1)
  - PUBIS FRACTURE [None]
